FAERS Safety Report 23310290 (Version 2)
Quarter: 2025Q1

REPORT INFORMATION
  Report Type: Spontaneous
  Country: US (occurrence: US)
  Receive Date: 20231218
  Receipt Date: 20250318
  Transmission Date: 20250408
  Serious: No
  Sender: PFIZER
  Company Number: US-PFIZER INC-PV202300196024

PATIENT
  Age: 64 Year

DRUGS (1)
  1. DEMEROL [Suspect]
     Active Substance: MEPERIDINE HYDROCHLORIDE

REACTIONS (3)
  - Drug hypersensitivity [Unknown]
  - Vomiting [Unknown]
  - Diarrhoea [Unknown]
